FAERS Safety Report 4848078-5 (Version None)
Quarter: 2005Q4

REPORT INFORMATION
  Report Type: 
  Country: None (occurrence: None)
  Receive Date: 20051208
  Receipt Date: 20050613
  Transmission Date: 20060501
  Serious: Yes (Death)
  Sender: FDA-Public Use
  Company Number: FR-BRISTOL-MYERS SQUIBB COMPANY-13004551

PATIENT
  Age: 41 Year
  Sex: Female

DRUGS (4)
  1. ABILIFY [Suspect]
     Indication: SCHIZOPHRENIA
     Dosage: INITIATED AT 10 MG AND THEN INCREASED TO 15 MG DAILY (NO DATES PROVIDED).
     Route: 048
     Dates: start: 20050507
  2. TERALITHE [Suspect]
     Route: 048
     Dates: end: 20050503
  3. TEMESTA [Concomitant]
     Dates: start: 20050507
  4. LOXAPAC [Concomitant]
     Dates: start: 20050520

REACTIONS (2)
  - CARDIO-RESPIRATORY ARREST [None]
  - COMPLETED SUICIDE [None]
